FAERS Safety Report 21133657 (Version 1)
Quarter: 2022Q3

REPORT INFORMATION
  Report Type: Spontaneous
  Country: IT (occurrence: None)
  Receive Date: 20220726
  Receipt Date: 20220726
  Transmission Date: 20221027
  Serious: Yes (Other)
  Sender: FDA-Public Use
  Company Number: 2022A264999

PATIENT
  Age: 55 Year
  Sex: Male

DRUGS (15)
  1. TICAGRELOR [Interacting]
     Active Substance: TICAGRELOR
     Indication: Acute myocardial infarction
     Route: 048
  2. TICAGRELOR [Interacting]
     Active Substance: TICAGRELOR
     Indication: Angiocardiogram
     Route: 048
  3. TICAGRELOR [Interacting]
     Active Substance: TICAGRELOR
     Indication: Stent placement
     Route: 048
  4. ASPIRIN [Interacting]
     Active Substance: ASPIRIN
     Indication: Acute myocardial infarction
     Route: 065
  5. ASPIRIN [Interacting]
     Active Substance: ASPIRIN
     Indication: Angiocardiogram
     Route: 065
  6. ASPIRIN [Interacting]
     Active Substance: ASPIRIN
     Indication: Stent placement
     Route: 065
  7. ATORVASTATIN [Interacting]
     Active Substance: ATORVASTATIN
     Indication: Acute myocardial infarction
     Route: 065
  8. ATORVASTATIN [Interacting]
     Active Substance: ATORVASTATIN
     Indication: Angiocardiogram
     Route: 065
  9. ATORVASTATIN [Interacting]
     Active Substance: ATORVASTATIN
     Indication: Stent placement
     Route: 065
  10. ATORVASTATIN [Interacting]
     Active Substance: ATORVASTATIN
     Indication: Acute myocardial infarction
     Route: 065
  11. ATORVASTATIN [Interacting]
     Active Substance: ATORVASTATIN
     Indication: Angiocardiogram
     Route: 065
  12. ATORVASTATIN [Interacting]
     Active Substance: ATORVASTATIN
     Indication: Stent placement
     Route: 065
  13. ETRAVIRINE [Concomitant]
     Active Substance: ETRAVIRINE
  14. DARUNAVIR\RITONAVIR [Concomitant]
     Active Substance: DARUNAVIR\RITONAVIR
  15. EMTRICITABINA/TENOFOVIR ALAFENAMIDE [Concomitant]
     Dosage: 10.0MG UNKNOWN

REACTIONS (5)
  - Drug interaction [Unknown]
  - Gait disturbance [Recovered/Resolved]
  - Pain [Recovered/Resolved]
  - Paraesthesia [Recovered/Resolved]
  - Blood creatine phosphokinase abnormal [Recovered/Resolved]
